FAERS Safety Report 5809738-2 (Version None)
Quarter: 2008Q3

REPORT INFORMATION
  Report Type: 
  Country: None (occurrence: None)
  Receive Date: 20080714
  Receipt Date: 20080714
  Transmission Date: 20090109
  Serious: Yes (Life-Threatening, Disabling)
  Sender: FDA-Public Use
  Company Number: None

PATIENT
  Age: 27 Year
  Sex: Male
  Weight: 90.7194 kg

DRUGS (1)
  1. CHANTIX [Suspect]
     Dosage: 2 TIMES DAILY PO
     Route: 048
     Dates: start: 20080628

REACTIONS (10)
  - ABNORMAL BEHAVIOUR [None]
  - ALCOHOL USE [None]
  - ANGER [None]
  - ANTISOCIAL BEHAVIOUR [None]
  - ANXIETY [None]
  - DEPRESSION [None]
  - FEELING ABNORMAL [None]
  - INSOMNIA [None]
  - IRRITABILITY [None]
  - SOCIAL AVOIDANT BEHAVIOUR [None]
